FAERS Safety Report 21913900 (Version 1)
Quarter: 2023Q1

REPORT INFORMATION
  Report Type: Spontaneous
  Country: US (occurrence: US)
  Receive Date: 20230125
  Receipt Date: 20230125
  Transmission Date: 20230418
  Serious: No
  Sender: FDA-Public Use
  Company Number: US-ALLERGAN-2223127US

PATIENT
  Age: 65 Year
  Sex: Male

DRUGS (6)
  1. BOTOX [Suspect]
     Active Substance: ONABOTULINUMTOXINA
     Indication: Product used for unknown indication
     Dosage: UNK, SINGLE
     Dates: start: 2022, end: 2022
  2. BOTOX [Suspect]
     Active Substance: ONABOTULINUMTOXINA
     Dosage: UNK UNK, SINGLE
     Route: 058
     Dates: start: 202104, end: 202104
  3. LONGVIDA [Concomitant]
     Indication: Cerebral disorder
     Route: 048
     Dates: start: 2021
  4. Fish Oil with Flax and Borage Oil [Concomitant]
     Indication: Nutritional supplementation
     Route: 048
     Dates: start: 2020
  5. AMITRIPTYLINE [Concomitant]
     Active Substance: AMITRIPTYLINE
     Indication: Migraine
     Route: 048
     Dates: start: 2014
  6. Zonifamide [Concomitant]
     Indication: Migraine
     Route: 048
     Dates: start: 202101

REACTIONS (3)
  - Incorrect route of product administration [Unknown]
  - Therapeutic response decreased [Unknown]
  - Vision blurred [Recovering/Resolving]

NARRATIVE: CASE EVENT DATE: 20210101
